FAERS Safety Report 14514192 (Version 1)
Quarter: 2018Q1

REPORT INFORMATION
  Report Type: Report from Study
  Country: FR (occurrence: FR)
  Receive Date: 20180209
  Receipt Date: 20180209
  Transmission Date: 20180509
  Serious: Yes (Hospitalization, Other)
  Sender: FDA-Public Use
  Company Number: FR-SHIRE-FR201802007

PATIENT

DRUGS (5)
  1. CYTARABINE. [Suspect]
     Active Substance: CYTARABINE
     Indication: ACUTE LYMPHOCYTIC LEUKAEMIA
     Dosage: (52.5+51.3) MG
     Route: 042
     Dates: end: 20180101
  2. VINCRISTINE [Suspect]
     Active Substance: VINCRISTINE
     Indication: ACUTE LYMPHOCYTIC LEUKAEMIA
     Dosage: 1.05 MG, UNK
     Route: 042
     Dates: start: 20180103, end: 20180103
  3. PURINETHOL [Suspect]
     Active Substance: MERCAPTOPURINE
     Indication: ACUTE LYMPHOCYTIC LEUKAEMIA
     Dosage: (41.04X2) MG
     Route: 048
     Dates: end: 20180102
  4. BACTRIM [Concomitant]
     Active Substance: SULFAMETHOXAZOLE\TRIMETHOPRIM
     Indication: ANTI-INFECTIVE THERAPY
  5. PEGASPARGASE [Suspect]
     Active Substance: PEGASPARGASE
     Indication: ACUTE LYMPHOCYTIC LEUKAEMIA
     Dosage: 862.5 IU, UNK
     Route: 042
     Dates: start: 20180103, end: 20180103

REACTIONS (2)
  - Klebsiella infection [Unknown]
  - Febrile bone marrow aplasia [Unknown]

NARRATIVE: CASE EVENT DATE: 20180109
